FAERS Safety Report 11223386 (Version 1)
Quarter: 2015Q2

REPORT INFORMATION
  Report Type: Spontaneous
  Country: US (occurrence: US)
  Receive Date: 20150627
  Receipt Date: 20150627
  Transmission Date: 20150821
  Serious: No
  Sender: FDA-Public Use
  Company Number: US-009507513-1506USA014023

PATIENT
  Age: 21 Year
  Sex: Female
  Weight: 101.59 kg

DRUGS (1)
  1. NEXPLANON [Suspect]
     Active Substance: ETONOGESTREL
     Dosage: UNK
     Route: 059
     Dates: start: 20150515, end: 20150528

REACTIONS (5)
  - Urinary tract infection [Unknown]
  - Device expulsion [Recovered/Resolved]
  - Skin discolouration [Unknown]
  - Device expulsion [Recovered/Resolved]
  - Medical device complication [Recovered/Resolved]

NARRATIVE: CASE EVENT DATE: 201505
